FAERS Safety Report 8029427-6 (Version None)
Quarter: 2012Q1

REPORT INFORMATION
  Report Type: 
  Country: None (occurrence: None)
  Receive Date: 20120107
  Receipt Date: 20120103
  Transmission Date: 20120608
  Serious: Yes (Disabling)
  Sender: FDA-Public Use
  Company Number: GB-SP-2011-11816

PATIENT
  Sex: Female

DRUGS (3)
  1. ACETAMINOPHEN [Concomitant]
  2. ACTONEL [Concomitant]
     Indication: OSTEOPOROSIS
     Dosage: ONCE PER WEEK
  3. IMMUCYST [Suspect]
     Indication: PRODUCT USED FOR UNKNOWN INDICATION
     Route: 065
     Dates: start: 20110114, end: 20111104

REACTIONS (2)
  - PTERYGIUM [None]
  - ARTHRITIS [None]
